FAERS Safety Report 21482802 (Version 1)
Quarter: 2022Q4

REPORT INFORMATION
  Report Type: Spontaneous
  Country: DE (occurrence: DE)
  Receive Date: 20221020
  Receipt Date: 20221020
  Transmission Date: 20230113
  Serious: Yes (Other)
  Sender: FDA-Public Use
  Company Number: DE-AMGEN-DEUNI2019190567

PATIENT
  Age: 79 Year
  Sex: Female
  Weight: 77 kg

DRUGS (35)
  1. LEUCOVORIN [Suspect]
     Active Substance: LEUCOVORIN
     Indication: Colorectal cancer metastatic
     Dosage: 740 MILLIGRAM
     Route: 065
     Dates: start: 20180423
  2. LEUCOVORIN [Suspect]
     Active Substance: LEUCOVORIN
     Dosage: 730 MILLIGRAM
     Route: 065
     Dates: start: 20180611
  3. LEUCOVORIN [Suspect]
     Active Substance: LEUCOVORIN
     Dosage: 720 MILLIGRAM
     Route: 065
     Dates: start: 20180802
  4. LEUCOVORIN [Suspect]
     Active Substance: LEUCOVORIN
     Dosage: 750 MILLIGRAM
     Route: 065
     Dates: start: 20190211
  5. IRINOTECAN [Suspect]
     Active Substance: IRINOTECAN
     Indication: Colorectal cancer metastatic
     Dosage: 335 MILLIGRAM
     Route: 065
     Dates: start: 20180423
  6. IRINOTECAN [Suspect]
     Active Substance: IRINOTECAN
     Dosage: 325 MILLIGRAM
     Route: 065
     Dates: start: 20180611
  7. IRINOTECAN [Suspect]
     Active Substance: IRINOTECAN
     Dosage: 320 MILLIGRAM
     Route: 065
     Dates: start: 20180802
  8. IRINOTECAN [Suspect]
     Active Substance: IRINOTECAN
     Dosage: 330 MILLIGRAM
     Route: 065
     Dates: start: 20190211
  9. FLUOROURACIL [Suspect]
     Active Substance: FLUOROURACIL
     Indication: Colorectal cancer metastatic
     Dosage: 740 MILLIGRAM
     Route: 040
     Dates: start: 20180423
  10. FLUOROURACIL [Suspect]
     Active Substance: FLUOROURACIL
     Dosage: 4440 MILLIGRAM
     Route: 042
     Dates: start: 20180423
  11. FLUOROURACIL [Suspect]
     Active Substance: FLUOROURACIL
     Dosage: 4390 MILLIGRAM
     Route: 042
     Dates: start: 20180611
  12. FLUOROURACIL [Suspect]
     Active Substance: FLUOROURACIL
     Dosage: 550 MILLIGRAM
     Route: 040
     Dates: start: 20180611
  13. FLUOROURACIL [Suspect]
     Active Substance: FLUOROURACIL
     Dosage: 4365 MILLIGRAM
     Route: 042
     Dates: start: 20180625
  14. FLUOROURACIL [Suspect]
     Active Substance: FLUOROURACIL
     Dosage: 4315 MILLIGRAM
     Route: 042
     Dates: start: 20180802
  15. FLUOROURACIL [Suspect]
     Active Substance: FLUOROURACIL
     Dosage: 540 MILLIGRAM
     Route: 040
     Dates: start: 20180802
  16. FLUOROURACIL [Suspect]
     Active Substance: FLUOROURACIL
     Dosage: 560 MILLIGRAM
     Route: 040
     Dates: start: 20190211
  17. FLUOROURACIL [Suspect]
     Active Substance: FLUOROURACIL
     Dosage: 3365 MILLIGRAM
     Route: 042
     Dates: start: 20190211
  18. FLUOROURACIL [Suspect]
     Active Substance: FLUOROURACIL
     Dosage: UNK
  19. VECTIBIX [Suspect]
     Active Substance: PANITUMUMAB
     Indication: Product used for unknown indication
     Dosage: 455 MILLIGRAM
     Route: 042
     Dates: start: 20180423
  20. VECTIBIX [Suspect]
     Active Substance: PANITUMUMAB
     Dosage: 440 MILLIGRAM
     Route: 042
     Dates: start: 20180611
  21. VECTIBIX [Suspect]
     Active Substance: PANITUMUMAB
     Dosage: 435 MILLIGRAM
     Route: 042
     Dates: start: 20180625
  22. VECTIBIX [Suspect]
     Active Substance: PANITUMUMAB
     Dosage: 420 MILLIGRAM
     Route: 042
     Dates: start: 20180802
  23. VECTIBIX [Suspect]
     Active Substance: PANITUMUMAB
     Dosage: 465 MILLIGRAM
     Route: 042
     Dates: start: 20190211
  24. AMLODIPINE [Concomitant]
     Active Substance: AMLODIPINE BESYLATE
     Indication: Hypertension
     Dosage: 5 MILLIGRAM, ONCE A DAY
     Route: 048
  25. BISOPROLOL [Concomitant]
     Active Substance: BISOPROLOL
     Indication: Hypertension
     Dosage: 2.5 MILLIGRAM, TWO TIMES A DAY (5MG ONCE A DAY)
     Route: 048
  26. CANDESARTAN [Concomitant]
     Active Substance: CANDESARTAN
     Indication: Hypertension
     Dosage: 4 MILLIGRAM, ONCE A DAY
     Route: 048
  27. CHOLECALCIFEROL [Concomitant]
     Active Substance: CHOLECALCIFEROL
     Indication: Vitamin D deficiency
     Dosage: UNK,(2000 IE QWK)
     Route: 048
     Dates: start: 20171030
  28. CHOLECALCIFEROL [Concomitant]
     Active Substance: CHOLECALCIFEROL
     Dosage: 2.5 MILLIGRAM, TWO TIMES A DAY
     Route: 048
  29. BENSERAZIDE\LEVODOPA [Concomitant]
     Active Substance: BENSERAZIDE\LEVODOPA
     Indication: Restless legs syndrome
     Dosage: 2 UNK, ONCE A DAY, (BID)
     Route: 048
  30. Selenase [Concomitant]
     Indication: Selenium deficiency
     Dosage: 100 MICROGRAM, ONCE A DAY
     Route: 048
  31. PANITUMUMAB [Suspect]
     Active Substance: PANITUMUMAB
     Indication: Product used for unknown indication
     Dosage: 455 MILLIGRAM
     Route: 042
     Dates: start: 20180423
  32. PANITUMUMAB [Suspect]
     Active Substance: PANITUMUMAB
     Dosage: 440 MILLIGRAM
     Route: 042
     Dates: start: 20180611
  33. PANITUMUMAB [Suspect]
     Active Substance: PANITUMUMAB
     Dosage: 435 MILLIGRAM
     Route: 042
     Dates: start: 20180625
  34. PANITUMUMAB [Suspect]
     Active Substance: PANITUMUMAB
     Dosage: 420 MILLIGRAM
     Route: 042
     Dates: start: 20180802
  35. PANITUMUMAB [Suspect]
     Active Substance: PANITUMUMAB
     Dosage: 465 MILLIGRAM
     Route: 042
     Dates: start: 20190211

REACTIONS (1)
  - Atrial fibrillation [Unknown]

NARRATIVE: CASE EVENT DATE: 20190218
